FAERS Safety Report 6815387-X (Version None)
Quarter: 2010Q3

REPORT INFORMATION
  Report Type: 
  Country: None (occurrence: None)
  Receive Date: 20100702
  Receipt Date: 20100625
  Transmission Date: 20110219
  Serious: Yes (Hospitalization)
  Sender: FDA-Public Use
  Company Number: US-SANOFI-AVENTIS-2010SA037713

PATIENT
  Age: 68 Year
  Sex: Male

DRUGS (16)
  1. PLAVIX [Suspect]
     Route: 048
     Dates: start: 20100401, end: 20100501
  2. PLAVIX [Suspect]
     Route: 048
     Dates: start: 20100525
  3. ASPIRIN [Concomitant]
     Route: 048
     Dates: end: 20100501
  4. ASPIRIN [Concomitant]
     Route: 048
     Dates: start: 20100525
  5. THYROID THERAPY [Concomitant]
  6. METOPROLOL TARTRATE [Concomitant]
  7. FLOMAX [Concomitant]
     Indication: PROSTATIC DISORDER
  8. IRON [Concomitant]
  9. MULTI-VITAMINS [Concomitant]
  10. CALCIUM CARBONATE [Concomitant]
  11. VITAMIN D [Concomitant]
  12. VITAMIN E [Concomitant]
  13. GLUCOSAMINE [Concomitant]
  14. LIPITOR [Concomitant]
     Indication: CORONARY ARTERY DISEASE
     Dates: start: 20100401
  15. FISH OIL [Concomitant]
  16. HUMIRA [Concomitant]

REACTIONS (3)
  - HEADACHE [None]
  - MUSCLE INJURY [None]
  - THROMBOSIS [None]
